FAERS Safety Report 11839250 (Version 1)
Quarter: 2015Q4

REPORT INFORMATION
  Report Type: Spontaneous
  Country: US (occurrence: US)
  Receive Date: 20151216
  Receipt Date: 20151216
  Transmission Date: 20160305
  Serious: No
  Sender: FDA-Public Use
  Company Number: US-TEVA-599062USA

PATIENT
  Sex: Female
  Weight: 51.76 kg

DRUGS (1)
  1. MUPIROCIN. [Suspect]
     Active Substance: MUPIROCIN
     Indication: ANTIBIOTIC PROPHYLAXIS
     Dates: start: 20150923

REACTIONS (8)
  - Incorrect route of drug administration [Unknown]
  - Eructation [Unknown]
  - Abdominal pain [Unknown]
  - Eye irritation [Unknown]
  - Diarrhoea [Unknown]
  - Headache [Unknown]
  - Swelling face [Unknown]
  - Nasal discomfort [Unknown]
